FAERS Safety Report 10490944 (Version 1)
Quarter: 2014Q4

REPORT INFORMATION
  Report Type: Spontaneous
  Country: US (occurrence: US)
  Receive Date: 20141002
  Receipt Date: 20141002
  Transmission Date: 20150528
  Serious: No
  Sender: FDA-Public Use
  Company Number: US-GLAXOSMITHKLINE-A1044596A

PATIENT
  Age: 81 Year
  Sex: Male

DRUGS (9)
  1. ADVAIR HFA [Suspect]
     Active Substance: FLUTICASONE PROPIONATE\SALMETEROL XINAFOATE
     Indication: PRODUCT USED FOR UNKNOWN INDICATION
     Route: 055
  2. FUROSAMIDE [Concomitant]
  3. CARVEDILOL. [Concomitant]
     Active Substance: CARVEDILOL
  4. TAMSULOSIN [Concomitant]
     Active Substance: TAMSULOSIN
  5. AMIODARONE [Concomitant]
     Active Substance: AMIODARONE
  6. MAGNESIUM OXIDE. [Concomitant]
     Active Substance: MAGNESIUM OXIDE
  7. POTASSIUM CHLORIDE. [Concomitant]
     Active Substance: POTASSIUM CHLORIDE
  8. LOSARTAN [Concomitant]
     Active Substance: LOSARTAN
  9. WARFARIN [Concomitant]
     Active Substance: WARFARIN

REACTIONS (2)
  - Upper respiratory tract congestion [Recovered/Resolved]
  - Product quality issue [Recovered/Resolved]
